FAERS Safety Report 14552280 (Version 1)
Quarter: 2018Q1

REPORT INFORMATION
  Report Type: Spontaneous
  Country: US (occurrence: US)
  Receive Date: 20180216
  Receipt Date: 20180216
  Transmission Date: 20180509
  Serious: No
  Sender: FDA-Public Use
  Company Number: None

PATIENT
  Sex: Female
  Weight: 59.42 kg

DRUGS (1)
  1. OTEZLA [Suspect]
     Active Substance: APREMILAST
     Indication: PSORIASIS
     Route: 048
     Dates: start: 20170606

REACTIONS (7)
  - Weight decreased [None]
  - Pallor [None]
  - Diarrhoea [None]
  - Vomiting [None]
  - Fatigue [None]
  - Dyspnoea [None]
  - Blood disorder [None]
